FAERS Safety Report 7404899-6 (Version None)
Quarter: 2011Q2

REPORT INFORMATION
  Report Type: 
  Country: None (occurrence: None)
  Receive Date: 20110411
  Receipt Date: 20110404
  Transmission Date: 20111010
  Serious: Yes (Death, Life-Threatening, Hospitalization, Other)
  Sender: FDA-Public Use
  Company Number: AU-CELGENEUS-008-C5013-05050157

PATIENT
  Sex: Male
  Weight: 82 kg

DRUGS (13)
  1. LENALIDOMIDE [Suspect]
     Indication: MULTIPLE MYELOMA
     Dosage: 25 MILLIGRAM
     Route: 048
     Dates: start: 20040405
  2. DEXAMETHASONE [Suspect]
     Indication: MULTIPLE MYELOMA
     Dosage: 40 MILLIGRAM
     Route: 048
     Dates: start: 20040405, end: 20050501
  3. GLUCOSAMINE [Concomitant]
     Indication: ARTHRITIS
     Dosage: UNKNOWN
     Route: 065
     Dates: start: 20030901
  4. VITAMIN B [Concomitant]
     Indication: VITAMIN SUPPLEMENTATION
     Dosage: UNKNOWN
     Route: 065
     Dates: start: 20030101
  5. IRBESARTIN [Concomitant]
     Indication: HYPERTENSION
     Dosage: UNKNOWN
     Route: 065
     Dates: start: 20000101
  6. EPOEITIN [Concomitant]
     Dosage: UNKNOWN
     Route: 065
     Dates: start: 20040113
  7. DILANTIN [Concomitant]
     Dosage: 300 MILLIGRAM
     Route: 065
     Dates: end: 20050601
  8. PARACETAMOL [Concomitant]
     Indication: BACK PAIN
     Dosage: UNKNOWN
     Route: 065
     Dates: start: 20041201
  9. ASCORBIC ACID [Concomitant]
     Indication: VITAMIN SUPPLEMENTATION
     Dosage: UNKNOWN
     Route: 065
     Dates: start: 20030101
  10. INDOMETHACIN [Concomitant]
     Indication: BACK PAIN
     Dosage: UNKNOWN
     Route: 065
     Dates: start: 20000113
  11. DILTIAZEM [Concomitant]
     Indication: HYPERTENSION
     Dosage: UNKNOWN
     Route: 065
     Dates: start: 20000101
  12. LENALIDOMIDE [Suspect]
     Dosage: 15 MILLIGRAM
     Route: 048
     Dates: end: 20050505
  13. DEXAMETHASONE [Suspect]
     Dosage: 2 MILLIGRAM
     Route: 048
     Dates: start: 20050601, end: 20050601

REACTIONS (1)
  - GLIOBLASTOMA MULTIFORME [None]
